FAERS Safety Report 6288528-3 (Version None)
Quarter: 2009Q3

REPORT INFORMATION
  Report Type: 
  Country: None (occurrence: None)
  Receive Date: 20090727
  Receipt Date: 20071221
  Transmission Date: 20100115
  Serious: Yes (Life-Threatening)
  Sender: FDA-Public Use
  Company Number: FR-GUERBET-20070217

PATIENT
  Age: 79 Year
  Sex: Male

DRUGS (1)
  1. HEXABRIX [Suspect]
     Indication: ARTERIOGRAM CORONARY
     Dosage: 100, ML MILLILITRE(S), 1, L, TOTAL
     Dates: start: 20071122, end: 20071122

REACTIONS (6)
  - ANAPHYLACTIC SHOCK [None]
  - CARDIO-RESPIRATORY ARREST [None]
  - ERYTHEMA [None]
  - FEELING HOT [None]
  - LOSS OF CONSCIOUSNESS [None]
  - NAUSEA [None]
